FAERS Safety Report 9980686 (Version 1)
Quarter: 2014Q1

REPORT INFORMATION
  Report Type: Spontaneous
  Country: JP (occurrence: JP)
  Receive Date: 20140307
  Receipt Date: 20140307
  Transmission Date: 20141002
  Serious: Yes (Other)
  Sender: FDA-Public Use
  Company Number: JP-009507513-1403JPN000235

PATIENT
  Age: 20 Year
  Sex: 0

DRUGS (3)
  1. FOSAMAC TABLETS 35MG [Suspect]
     Dosage: DAILY DOSAGE UNKNOWN
     Route: 048
     Dates: start: 201311
  2. FOSAMAC TABLETS 35MG [Suspect]
     Dosage: DAILY DOSAGE UNKNOWN
     Route: 048
  3. HORMONES (UNSPECIFIED) [Concomitant]
     Dosage: POR, DAILY DOSAGE UNKNOWN
     Route: 048

REACTIONS (2)
  - Osteonecrosis [Unknown]
  - Osteonecrosis [Unknown]
